FAERS Safety Report 25792718 (Version 1)
Quarter: 2025Q3

REPORT INFORMATION
  Report Type: Spontaneous
  Country: US (occurrence: US)
  Receive Date: 20250911
  Receipt Date: 20250911
  Transmission Date: 20251021
  Serious: No
  Sender: SANOFI AVENTIS
  Company Number: US-SA-2025SA270300

PATIENT
  Sex: Female

DRUGS (6)
  1. NEXVIAZYME [Suspect]
     Active Substance: AVALGLUCOSIDASE ALFA-NGPT
     Indication: Glycogen storage disease type II
     Dosage: 1400 MG, QOW
     Route: 042
     Dates: start: 202207
  2. SODIUM CHLORIDE [Concomitant]
     Active Substance: SODIUM CHLORIDE
  3. DEXTROSE [Concomitant]
     Active Substance: DEXTROSE MONOHYDRATE
  4. EPINEPHRINE [Concomitant]
     Active Substance: EPINEPHRINE
  5. STERILE WATER [Concomitant]
     Active Substance: WATER
  6. DEXTROSE [Concomitant]
     Active Substance: DEXTROSE MONOHYDRATE

REACTIONS (1)
  - Weight increased [Unknown]
